FAERS Safety Report 20015793 (Version 1)
Quarter: 2021Q4

REPORT INFORMATION
  Report Type: Spontaneous
  Country: US (occurrence: None)
  Receive Date: 20211101
  Receipt Date: 20211101
  Transmission Date: 20220303
  Serious: Yes (Death)
  Sender: FDA-Public Use
  Company Number: None

PATIENT
  Sex: Male

DRUGS (18)
  1. ERLEADA [Suspect]
     Active Substance: APALUTAMIDE
     Indication: Prostate cancer
     Dosage: FREQUENCY : DAILY;?
     Route: 048
     Dates: start: 20191206
  2. AMLODIPINE TAB [Concomitant]
  3. ATORVASTATIN [Concomitant]
     Active Substance: ATORVASTATIN
  4. BALSALAZIDE CAP [Concomitant]
  5. CYCLOSPORINE [Concomitant]
     Active Substance: CYCLOSPORINE
  6. ENTYVIO [Concomitant]
     Active Substance: VEDOLIZUMAB
  7. FLUOXETINE CAP [Concomitant]
  8. IBUPROFEN TAB [Concomitant]
  9. LIALDA TAB [Concomitant]
  10. LUPRON DEPOT [Concomitant]
     Active Substance: LEUPROLIDE ACETATE
  11. NONI JUICE LIQ [Concomitant]
  12. ONE-A-DAY TAB MENS [Concomitant]
  13. PREDNISONE [Concomitant]
     Active Substance: PREDNISONE
  14. RENVELA POW [Concomitant]
  15. ROPIIROLE TAB [Concomitant]
  16. SEVELAMER TAB [Concomitant]
  17. TYLENOL TAB [Concomitant]
  18. ZOLPIDEM TAB [Concomitant]

REACTIONS (1)
  - Death [None]
